FAERS Safety Report 6534974-X (Version None)
Quarter: 2010Q1

REPORT INFORMATION
  Report Type: 
  Country: None (occurrence: None)
  Receive Date: 20100111
  Receipt Date: 20100111
  Transmission Date: 20100710
  Serious: Yes (Hospitalization)
  Sender: FDA-Public Use
  Company Number: None

PATIENT
  Age: 64 Year
  Sex: Female
  Weight: 71 kg

DRUGS (13)
  1. RISPERIDONE [Suspect]
     Indication: PSYCHOTIC DISORDER
     Dosage: 1.0MG PO AT BEDTIME
     Route: 048
     Dates: start: 20090522
  2. RISPERIDONE [Suspect]
     Dosage: 1.5-2.0 MG PO QHS
     Route: 048
     Dates: start: 20070427, end: 20080315
  3. PLAQUNEIL [Concomitant]
  4. METHOTREXATE [Concomitant]
  5. AMBIEN [Concomitant]
  6. AFFEXOR [Concomitant]
  7. METFORMIN [Concomitant]
  8. VICODIN [Concomitant]
  9. REMERON [Concomitant]
  10. NEURONTIN [Concomitant]
  11. PREDNISONE [Concomitant]
  12. MIRTAZAPINE [Concomitant]
  13. PRILOSEC [Concomitant]

REACTIONS (5)
  - AKATHISIA [None]
  - BRONCHIAL HYPERREACTIVITY [None]
  - COUGH [None]
  - DYSPNOEA [None]
  - VIRAL INFECTION [None]
